FAERS Safety Report 5150513-2 (Version None)
Quarter: 2006Q4

REPORT INFORMATION
  Report Type: 
  Country: None (occurrence: None)
  Receive Date: 20061109
  Receipt Date: 20061109
  Transmission Date: 20070319
  Serious: Yes (Hospitalization)
  Sender: FDA-Public Use
  Company Number: None

PATIENT
  Sex: Male
  Weight: 94.5 kg

DRUGS (7)
  1. FLUOROURACIL [Suspect]
     Dosage: 4975 MG
     Route: 040
     Dates: end: 20061030
  2. LEUCOVORIN CALCIUM [Suspect]
     Dosage: 900 MG
     Dates: end: 20061030
  3. OXALIPLATIN [Suspect]
     Dosage: 145 MG
     Dates: end: 20061030
  4. AEROBID [Concomitant]
  5. ALBUTEROL [Concomitant]
  6. SYNTHROID [Concomitant]
  7. TRANXENE [Concomitant]

REACTIONS (4)
  - ATRIAL FIBRILLATION [None]
  - DYSPNOEA [None]
  - HYPOTENSION [None]
  - PULMONARY EMBOLISM [None]
